FAERS Safety Report 5012481-3 (Version None)
Quarter: 2006Q2

REPORT INFORMATION
  Report Type: 
  Country: None (occurrence: None)
  Receive Date: 20060410
  Receipt Date: 20051229
  Transmission Date: 20061013
  Serious: Yes (Hospitalization)
  Sender: FDA-Public Use
  Company Number: 06P-163-0321112-00

PATIENT
  Age: 21 Year
  Sex: Female
  Weight: 58.9676 kg

DRUGS (5)
  1. DEPAKOTE [Suspect]
     Indication: CONVULSION
     Dosage: 250 MG, 3 IN 1 D, PER ORAL
     Route: 048
     Dates: start: 20050101, end: 20051101
  2. LORAZEPAM [Suspect]
     Indication: CONVULSION
     Dosage: 2 MG, 1 IN 1 D, PER ORAL
     Route: 048
     Dates: start: 20051104, end: 20051111
  3. PANTOPRAZOLE [Concomitant]
  4. RANITIDINE HYDROCHLORIDE [Concomitant]
  5. LEVOCARNITINE [Concomitant]

REACTIONS (2)
  - CONVULSION [None]
  - DRUG INEFFECTIVE [None]
